FAERS Safety Report 7200041-5 (Version None)
Quarter: 2010Q4

REPORT INFORMATION
  Report Type: 
  Country: None (occurrence: None)
  Receive Date: 20101228
  Receipt Date: 20101223
  Transmission Date: 20110411
  Serious: Yes (Other)
  Sender: FDA-Public Use
  Company Number: US-PFIZER INC-2010179511

PATIENT
  Sex: Female
  Weight: 81.193 kg

DRUGS (1)
  1. CHANTIX [Suspect]
     Indication: SMOKING CESSATION THERAPY
     Dosage: 1 MG, 2X/DAY
     Dates: start: 20100101, end: 20101201

REACTIONS (8)
  - BLISTER [None]
  - ERYTHEMA [None]
  - FURUNCLE [None]
  - HYPERAESTHESIA [None]
  - PAIN OF SKIN [None]
  - RASH [None]
  - SKIN EXFOLIATION [None]
  - SKIN LESION [None]
